FAERS Safety Report 9376529 (Version 1)
Quarter: 2013Q3

REPORT INFORMATION
  Report Type: Spontaneous
  Country: US (occurrence: US)
  Receive Date: 20130701
  Receipt Date: 20130701
  Transmission Date: 20140515
  Serious: No
  Sender: FDA-Public Use
  Company Number: US-PFIZER INC-2013194370

PATIENT
  Age: 30 Year
  Sex: Male
  Weight: 79.37 kg

DRUGS (4)
  1. CHANTIX [Suspect]
     Indication: SMOKING CESSATION THERAPY
     Dosage: UNK
     Dates: start: 2008, end: 2008
  2. CHANTIX [Suspect]
     Dosage: 1 MG, 2X/DAY
     Dates: start: 2008, end: 2008
  3. INSULIN [Concomitant]
     Indication: DIABETES MELLITUS
     Dosage: UNK
  4. NOVOLOG [Concomitant]
     Indication: DIABETES MELLITUS
     Dosage: 25 IU, DAILY,AS NEEDED

REACTIONS (1)
  - Drug ineffective [Unknown]
